FAERS Safety Report 12245899 (Version 1)
Quarter: 2016Q2

REPORT INFORMATION
  Report Type: Spontaneous
  Country: GR (occurrence: GR)
  Receive Date: 20160407
  Receipt Date: 20160407
  Transmission Date: 20160815
  Serious: Yes (Other)
  Sender: FDA-Public Use
  Company Number: GR-CIPLA LTD.-2016GR03422

PATIENT

DRUGS (3)
  1. BORTEZOMIB [Suspect]
     Active Substance: BORTEZOMIB
     Indication: NON-SMALL CELL LUNG CANCER METASTATIC
     Dosage: 1 MG/M2 ON DAYS 1 AND 8, REPEATED EVERY 21 DAYS
     Route: 042
  2. GEMCITABINE [Suspect]
     Active Substance: GEMCITABINE\GEMCITABINE HYDROCHLORIDE
     Indication: NON-SMALL CELL LUNG CANCER METASTATIC
     Dosage: 1000 MG/M2 ON DAYS 1 AND 8, REPEATED EVERY 21 DAYS
     Route: 065
  3. CISPLATIN. [Suspect]
     Active Substance: CISPLATIN
     Indication: NON-SMALL CELL LUNG CANCER METASTATIC
     Dosage: 70 MG/M2 ON DAY 1, REPEATED EVERY 21 DAYS
     Route: 065

REACTIONS (2)
  - Haematotoxicity [Unknown]
  - Toxicity to various agents [Unknown]
